FAERS Safety Report 10523005 (Version 3)
Quarter: 2014Q4

REPORT INFORMATION
  Report Type: Spontaneous
  Country: US (occurrence: US)
  Receive Date: 20141016
  Receipt Date: 20141223
  Transmission Date: 20150528
  Serious: Yes (Hospitalization, Other)
  Sender: FDA-Public Use
  Company Number: US-GLAXOSMITHKLINE-US2014002768

PATIENT
  Sex: Female

DRUGS (31)
  1. FENTANYL. [Concomitant]
     Active Substance: FENTANYL
  2. NOVOLOG [Concomitant]
     Active Substance: INSULIN ASPART
  3. CEFOTAXIME [Concomitant]
     Active Substance: CEFOTAXIME\CEFOTAXIME SODIUM
  4. SYNTHROID [Concomitant]
     Active Substance: LEVOTHYROXINE SODIUM
  5. COMPAZINE [Concomitant]
     Active Substance: PROCHLORPERAZINE MALEATE
  6. POTASSIUM CHLORIDE. [Concomitant]
     Active Substance: POTASSIUM CHLORIDE
  7. SENOKOT [Concomitant]
     Active Substance: SENNOSIDES
  8. MILK OF MAGNESIA [Concomitant]
     Active Substance: MAGNESIUM HYDROXIDE
  9. MORPHINE [Concomitant]
     Active Substance: MORPHINE
  10. PREDNISONE. [Concomitant]
     Active Substance: PREDNISONE
  11. SINGULAIR [Concomitant]
     Active Substance: MONTELUKAST SODIUM
  12. ADVAIR HFA [Suspect]
     Active Substance: FLUTICASONE PROPIONATE\SALMETEROL XINAFOATE
     Indication: PRODUCT USED FOR UNKNOWN INDICATION
     Dosage: 1 DF, BID
     Route: 055
  13. ULTRAM [Concomitant]
     Active Substance: TRAMADOL HYDROCHLORIDE
  14. MAALOX ANTACID [Concomitant]
     Active Substance: ALUMINUM HYDROXIDE\DIMETHICONE\MAGNESIUM HYDROXIDE
  15. ZOFRAN [Concomitant]
     Active Substance: ONDANSETRON HYDROCHLORIDE
  16. APRESOLINE HYDROCHLORIDE [Concomitant]
     Active Substance: HYDRALAZINE HYDROCHLORIDE
  17. DULCOLAX [Concomitant]
     Active Substance: BISACODYL OR DOCUSATE SODIUM
  18. PROVENTIL [Concomitant]
     Active Substance: ALBUTEROL
  19. TYLENOL [Concomitant]
     Active Substance: ACETAMINOPHEN
  20. PLAVIX [Concomitant]
     Active Substance: CLOPIDOGREL BISULFATE
  21. ATROVENT [Concomitant]
     Active Substance: IPRATROPIUM BROMIDE
  22. HEPARIN [Concomitant]
     Active Substance: HEPARIN SODIUM
  23. LORAZEPAM. [Concomitant]
     Active Substance: LORAZEPAM
  24. METOPROLOL [Concomitant]
     Active Substance: METOPROLOL
  25. MIRALAX [Concomitant]
     Active Substance: POLYETHYLENE GLYCOL 3350
  26. NEURONTIN [Concomitant]
     Active Substance: GABAPENTIN
  27. PEPCID [Concomitant]
     Active Substance: FAMOTIDINE
  28. ASPIRIN. [Concomitant]
     Active Substance: ASPIRIN
  29. ALPHAGAN P [Concomitant]
     Active Substance: BRIMONIDINE TARTRATE
  30. HALCION [Concomitant]
     Active Substance: TRIAZOLAM
  31. PAXIL [Concomitant]
     Active Substance: PAROXETINE HYDROCHLORIDE

REACTIONS (1)
  - Heart valve operation [Recovering/Resolving]
